FAERS Safety Report 19084823 (Version 3)
Quarter: 2021Q2

REPORT INFORMATION
  Report Type: Spontaneous
  Country: FR (occurrence: FR)
  Receive Date: 20210401
  Receipt Date: 20210616
  Transmission Date: 20210717
  Serious: Yes (Other)
  Sender: FDA-Public Use
  Company Number: FR-SA-2021SA099136

PATIENT
  Age: 88 Year
  Sex: Female
  Weight: 71 kg

DRUGS (7)
  1. ALEPSAL [PHENOBARBITAL] [Concomitant]
     Active Substance: PHENOBARBITAL
     Dosage: 110 MG, QD
  2. MEDIATENSYL [URAPIDIL] [Concomitant]
     Active Substance: URAPIDIL
     Indication: EPILEPSY
     Dosage: 60 MG, 2/DAY
  3. MYTELASE [Suspect]
     Active Substance: AMBENONIUM CHLORIDE
     Indication: OCULAR MYASTHENIA
     Dosage: 1 UNK
     Dates: start: 20201123
  4. MYTELASE [Suspect]
     Active Substance: AMBENONIUM CHLORIDE
     Dosage: 1/4 TABLET OF MYTELASE
     Dates: start: 20201205
  5. SELECTOL [Concomitant]
     Active Substance: CELIPROLOL
     Dosage: UNK
  6. MYTELASE [Suspect]
     Active Substance: AMBENONIUM CHLORIDE
     Indication: EYELID PTOSIS
     Dosage: 0.5 DF (21?NOV?2020, 1/2 TABLET OF MYTELASE ON 22?NOV?2020, 1/2 + 1/2 TABLET OF MYTELASE ON 23?NOV?2
     Route: 048
     Dates: start: 20201121, end: 20201124
  7. CELIPROLOL [Concomitant]
     Active Substance: CELIPROLOL

REACTIONS (13)
  - Clonus [Unknown]
  - Eyelid disorder [Unknown]
  - Hypertension [Recovering/Resolving]
  - Sleep disorder [Unknown]
  - Product dose omission issue [Unknown]
  - Hypertonia [Unknown]
  - Partial seizures [Recovering/Resolving]
  - Electric shock [Unknown]
  - Tremor [Unknown]
  - Muscle spasms [Recovering/Resolving]
  - Vision blurred [Unknown]
  - Nervous system disorder [Unknown]
  - Confusional state [Recovering/Resolving]

NARRATIVE: CASE EVENT DATE: 2020
